FAERS Safety Report 7216471-1 (Version None)
Quarter: 2011Q1

REPORT INFORMATION
  Report Type: 
  Country: None (occurrence: None)
  Receive Date: 20110107
  Receipt Date: 20110105
  Transmission Date: 20110831
  Serious: Yes (Death)
  Sender: FDA-Public Use
  Company Number: US-ABBOTT-11P-163-0695048-00

PATIENT
  Sex: Female

DRUGS (7)
  1. METHOTREXATE [Concomitant]
     Indication: PRODUCT USED FOR UNKNOWN INDICATION
  2. FENTANYL [Concomitant]
     Indication: PAIN
     Dosage: PATCH
  3. DEPAKOTE [Suspect]
     Indication: MIGRAINE
  4. KEPPRA [Concomitant]
     Indication: MIGRAINE
  5. LORA TAB [Concomitant]
     Indication: PAIN
  6. BENICAR [Concomitant]
     Indication: HYPERTENSION
  7. HUMIRA [Suspect]
     Indication: PRODUCT USED FOR UNKNOWN INDICATION

REACTIONS (3)
  - DRUG INEFFECTIVE [None]
  - DEATH [None]
  - JOINT STIFFNESS [None]
